FAERS Safety Report 10635223 (Version 2)
Quarter: 2023Q4

REPORT INFORMATION
  Report Type: Spontaneous
  Country: IT (occurrence: IT)
  Receive Date: 20141205
  Receipt Date: 20231130
  Transmission Date: 20240109
  Serious: Yes (Death, Other)
  Sender: FDA-Public Use
  Company Number: IT-UCBSA-2014020602

PATIENT
  Age: 64 Year
  Sex: Male

DRUGS (5)
  1. LACOSAMIDE [Suspect]
     Active Substance: LACOSAMIDE
     Indication: Partial seizures
     Dosage: 200 MG, ONE TIME DOSE, LOADING DOSE
     Route: 048
  2. LACOSAMIDE [Suspect]
     Active Substance: LACOSAMIDE
     Dosage: 100 MG TWICE DAILY UPTO 200 MG TWICE A DAY MAINTENANCE DOSE
     Route: 048
  3. LEVETIRACETAM [Suspect]
     Active Substance: LEVETIRACETAM
     Indication: Seizure
     Dosage: UP TO 3000 MG PER DAY
  4. PREGABALIN [Concomitant]
     Active Substance: PREGABALIN
     Indication: Seizure
     Dosage: UPTO 150 MG TWICE DAILY
  5. PHENOBARBITAL [Concomitant]
     Active Substance: PHENOBARBITAL
     Indication: Seizure
     Dosage: 50 MILLIGRAM

REACTIONS (3)
  - Hepatic failure [Fatal]
  - Partial seizures [Recovered/Resolved]
  - Metabolic encephalopathy [Recovering/Resolving]
